FAERS Safety Report 10407600 (Version 1)
Quarter: 2014Q3

REPORT INFORMATION
  Report Type: Report from Study
  Country: CA (occurrence: CA)
  Receive Date: 20140825
  Receipt Date: 20140825
  Transmission Date: 20150326
  Serious: Yes (Hospitalization)
  Sender: FDA-Public Use
  Company Number: PHHY2014CA105496

PATIENT
  Age: 59 Year
  Sex: Male

DRUGS (2)
  1. CLOZARIL [Suspect]
     Active Substance: CLOZAPINE
     Dosage: UNK UKN, UNK
     Route: 048
     Dates: start: 19980628, end: 20140806
  2. CLOZARIL [Suspect]
     Active Substance: CLOZAPINE
     Dosage: 300 MG, QHS
     Dates: start: 20140809

REACTIONS (2)
  - Vomiting [Unknown]
  - Malaise [Unknown]

NARRATIVE: CASE EVENT DATE: 20140806
